FAERS Safety Report 17653143 (Version 1)
Quarter: 2020Q2

REPORT INFORMATION
  Report Type: Spontaneous
  Country: US (occurrence: US)
  Receive Date: 20200409
  Receipt Date: 20200409
  Transmission Date: 20200713
  Serious: No
  Sender: FDA-Public Use
  Company Number: US-BEH-2020115294

PATIENT
  Age: 42 Year
  Sex: Female

DRUGS (14)
  1. BUDESONIDE. [Concomitant]
     Active Substance: BUDESONIDE
  2. PREDNISONE. [Concomitant]
     Active Substance: PREDNISONE
  3. HIZENTRA [Suspect]
     Active Substance: HUMAN IMMUNOGLOBULIN G
     Indication: IMMUNODEFICIENCY
     Dosage: 4 GRAM, QW
     Route: 065
     Dates: start: 20200305
  4. LEVAQUIN [Concomitant]
     Active Substance: LEVOFLOXACIN
  5. LINZESS [Concomitant]
     Active Substance: LINACLOTIDE
  6. SYNTHROID [Concomitant]
     Active Substance: LEVOTHYROXINE SODIUM
  7. TACROLIMUS. [Concomitant]
     Active Substance: TACROLIMUS
  8. AMITRIPTYLIN [Concomitant]
     Active Substance: AMITRIPTYLINE
  9. METHYLPRED [Concomitant]
     Active Substance: METHYLPREDNISOLONE
  10. HYOSCYAMINE. [Concomitant]
     Active Substance: HYOSCYAMINE
  11. HIZENTRA [Suspect]
     Active Substance: HUMAN IMMUNOGLOBULIN G
     Dosage: UNK
     Route: 065
     Dates: start: 20200323, end: 20200323
  12. AMLODIPINE [Concomitant]
     Active Substance: AMLODIPINE BESYLATE
  13. ENDOMETRIN [Concomitant]
     Active Substance: PROGESTERONE
  14. ESTRADIOL. [Concomitant]
     Active Substance: ESTRADIOL

REACTIONS (2)
  - Contusion [Not Recovered/Not Resolved]
  - Infusion site haemorrhage [Not Recovered/Not Resolved]

NARRATIVE: CASE EVENT DATE: 20200323
